FAERS Safety Report 18617846 (Version 2)
Quarter: 2021Q2

REPORT INFORMATION
  Report Type: Spontaneous
  Country: CA (occurrence: CA)
  Receive Date: 20201215
  Receipt Date: 20210614
  Transmission Date: 20210717
  Serious: Yes (Life-Threatening, Other)
  Sender: FDA-Public Use
  Company Number: CA-ACCORD-211007

PATIENT
  Age: 61 Year
  Sex: Female
  Weight: 49.1 kg

DRUGS (14)
  1. ADRIAMYCIN [Concomitant]
     Active Substance: DOXORUBICIN HYDROCHLORIDE
     Dosage: SEE OPIS FOR DETAIL
     Route: 042
  2. CRESTOR [Concomitant]
     Active Substance: ROSUVASTATIN CALCIUM
     Dosage: , QAM BY MOUTH
     Route: 048
  3. PACLITAXEL ACCORD [Suspect]
     Active Substance: PACLITAXEL
     Indication: BREAST CANCER
     Route: 042
     Dates: start: 20201117, end: 20201117
  4. PROCYTOX [Concomitant]
     Active Substance: CYCLOPHOSPHAMIDE
     Dosage: SEE OPIS FOR DETAIL
     Route: 042
  5. EMEND [Concomitant]
     Active Substance: APREPITANT
     Dosage: UD,TAKE 1 CAPSULE 1 HR PRIOR TO CHEMOTHERAPY THEN 1 CAPSULE (80 MG) 24 AND 48 HR AFTER
     Route: 048
  6. DECADRON [Concomitant]
     Active Substance: DEXAMETHASONE
     Dosage: DAILY,TAKE 2 TABLETS (8 MG) DAILY FOR 3 DAYS STARTING ON DAY 2 OF CHEMOTHERAPY CYCLE, BY MOUTH
     Route: 048
  7. GRASTOFIL [Concomitant]
     Active Substance: FILGRASTIM
     Dosage: 024H,STARTING 48 HR AFTER CHEMOTHERAPY
     Route: 058
  8. TRASTUZUMAB. [Concomitant]
     Active Substance: TRASTUZUMAB
  9. OMEGA 3 [Concomitant]
     Active Substance: OMEGA-3 FATTY ACIDS
     Dosage: 1 CAP, DAILY BY MOUTH
     Route: 048
  10. CHLORELLA VULGARIS [Concomitant]
     Active Substance: CHLORELLA VULGARIS
     Dosage: 1 EA DAILY BY MOUTH
     Route: 048
  11. ZYPREXA [Concomitant]
     Active Substance: OLANZAPINE
     Dosage: FOR NAUSEA OR VOMITING, PRN BID BY MOUTH
     Route: 048
  12. VITAMINS NOS [Concomitant]
     Active Substance: VITAMINS
     Dosage: 1TAB, QAM BY MOUTH
     Route: 048
  13. ASCORBIC ACID. [Concomitant]
     Active Substance: ASCORBIC ACID
     Dosage: DAILY  BY MOUTH
     Route: 048
  14. HYDROCHLOROTHIAZIDE/IRBESARTAN [Concomitant]
     Active Substance: HYDROCHLOROTHIAZIDE\IRBESARTAN
     Dosage: 1TAB, QAM BY MOUTH
     Route: 048

REACTIONS (8)
  - Flushing [Recovered/Resolved]
  - Tachypnoea [Recovered/Resolved]
  - Retching [Recovered/Resolved]
  - Malaise [Recovered/Resolved]
  - Nausea [Recovered/Resolved]
  - Pallor [Recovered/Resolved]
  - Tachycardia [Recovered/Resolved]
  - Dyspnoea [Recovered/Resolved]

NARRATIVE: CASE EVENT DATE: 20201117
